FAERS Safety Report 13653703 (Version 2)
Quarter: 2017Q3

REPORT INFORMATION
  Report Type: Spontaneous
  Country: PL (occurrence: PL)
  Receive Date: 20170614
  Receipt Date: 20170706
  Transmission Date: 20171127
  Serious: Yes (Other)
  Sender: FDA-Public Use
  Company Number: PL-ELI_LILLY_AND_COMPANY-PL201706001232

PATIENT
  Age: 40 Year
  Sex: Male
  Weight: 71.8 kg

DRUGS (2)
  1. HUMALOG [Suspect]
     Active Substance: INSULIN LISPRO
     Indication: TYPE 1 DIABETES MELLITUS
     Dosage: 15 U, TID
     Route: 065
  2. HUMULIN N [Suspect]
     Active Substance: INSULIN HUMAN
     Indication: TYPE 1 DIABETES MELLITUS
     Dosage: 15 U, EACH MORNING
     Route: 065

REACTIONS (5)
  - Normocytic anaemia [Unknown]
  - Nicotine dependence [Unknown]
  - Overdose [Unknown]
  - Diabetes mellitus inadequate control [Unknown]
  - Hypercholesterolaemia [Unknown]
